FAERS Safety Report 21440695 (Version 1)
Quarter: 2022Q4

REPORT INFORMATION
  Report Type: Spontaneous
  Country: CN (occurrence: CN)
  Receive Date: 20221011
  Receipt Date: 20221011
  Transmission Date: 20230113
  Serious: Yes (Hospitalization, Other)
  Sender: FDA-Public Use
  Company Number: CN-PFIZER INC-PV202200078880

PATIENT
  Age: 3 Year
  Sex: Male
  Weight: 16 kg

DRUGS (3)
  1. CYTARABINE [Suspect]
     Active Substance: CYTARABINE
     Indication: Acute leukaemia
     Dosage: 0.047 G, 1X/DAY
     Route: 042
     Dates: start: 20220620, end: 20220623
  2. CYCLOPHOSPHAMIDE [Suspect]
     Active Substance: CYCLOPHOSPHAMIDE
     Indication: Acute leukaemia
     Dosage: 0.64 G, 1X/DAY
     Route: 042
     Dates: start: 20220618, end: 20220618
  3. MERCAPTOPURINE [Suspect]
     Active Substance: MERCAPTOPURINE
     Indication: Acute leukaemia
     Dosage: 37.5 MG, 1X/DAY
     Route: 048
     Dates: start: 20220618, end: 20220701

REACTIONS (8)
  - Myelosuppression [Recovering/Resolving]
  - Haemorrhage subcutaneous [Unknown]
  - Breath sounds abnormal [Unknown]
  - Pallor [Unknown]
  - Mucosal discolouration [Unknown]
  - Lymphadenopathy [Unknown]
  - Abdominal distension [Unknown]
  - Pharyngeal erythema [Unknown]

NARRATIVE: CASE EVENT DATE: 20220624
